FAERS Safety Report 9339560 (Version 1)
Quarter: 2013Q2

REPORT INFORMATION
  Report Type: Spontaneous
  Country: JP (occurrence: None)
  Receive Date: 20130605
  Receipt Date: 20130605
  Transmission Date: 20140414
  Serious: No
  Sender: FDA-Public Use
  Company Number: SPI201300385

PATIENT
  Age: 39 Year
  Sex: Female

DRUGS (1)
  1. AMITIZA (LUBIPROSTONE) CAPSULE, 24 MCG [Suspect]
     Indication: CONSTIPATION
     Route: 048
     Dates: start: 20130220, end: 20130301

REACTIONS (2)
  - Dyspnoea [None]
  - Tachycardia [None]
